FAERS Safety Report 5902477-9 (Version None)
Quarter: 2008Q3

REPORT INFORMATION
  Report Type: 
  Country: None (occurrence: None)
  Receive Date: 20080929
  Receipt Date: 20080925
  Transmission Date: 20090109
  Serious: Yes (Death, Hospitalization)
  Sender: FDA-Public Use
  Company Number: FR-ASTRAZENECA-2008CG01403

PATIENT
  Age: 25970 Day
  Sex: Male

DRUGS (4)
  1. NEXIUM [Suspect]
     Route: 041
     Dates: start: 20080807, end: 20080810
  2. ACUPAN [Suspect]
     Dates: start: 20080807, end: 20080810
  3. PROPACETAMOL CHLORHYDRATE [Suspect]
  4. TAXOTERE [Suspect]
     Dates: end: 20080701

REACTIONS (1)
  - AGRANULOCYTOSIS [None]
